FAERS Safety Report 12124722 (Version 3)
Quarter: 2016Q2

REPORT INFORMATION
  Report Type: Spontaneous
  Country: PR (occurrence: PR)
  Receive Date: 20160229
  Receipt Date: 20160613
  Transmission Date: 20160815
  Serious: No
  Sender: FDA-Public Use
  Company Number: PR-PFIZER INC-2016108346

PATIENT
  Age: 74 Year
  Sex: Male
  Weight: 144.22 kg

DRUGS (3)
  1. INLYTA [Suspect]
     Active Substance: AXITINIB
     Dosage: UNK
  2. INLYTA [Suspect]
     Active Substance: AXITINIB
     Indication: RENAL CANCER
     Dosage: 5 MG, 2X/DAY
     Route: 048
     Dates: start: 20150201
  3. INLYTA [Suspect]
     Active Substance: AXITINIB
     Dosage: 5 MG, 2X/DAY
     Route: 048
     Dates: start: 20160201

REACTIONS (4)
  - Arthralgia [Unknown]
  - Pain [Unknown]
  - Abdominal discomfort [Unknown]
  - Speech disorder [Unknown]
